FAERS Safety Report 9640366 (Version 1)
Quarter: 2013Q4

REPORT INFORMATION
  Report Type: Spontaneous
  Country: US (occurrence: None)
  Receive Date: 20131022
  Receipt Date: 20131022
  Transmission Date: 20140711
  Serious: Yes (Disabling)
  Sender: FDA-Public Use
  Company Number: None

PATIENT
  Age: 51 Year
  Sex: Male
  Weight: 59.88 kg

DRUGS (2)
  1. CIPROFLOXACIN [Suspect]
     Indication: URINARY TRACT INFECTION
     Dosage: TAKEN BY MOUTH
     Dates: start: 20130929, end: 20130929
  2. CIPROFLOXACIN [Suspect]
     Indication: INFECTION
     Dosage: TAKEN BY MOUTH
     Dates: start: 20130929, end: 20130929

REACTIONS (5)
  - Pain in extremity [None]
  - Joint range of motion decreased [None]
  - Myalgia [None]
  - Epicondylitis [None]
  - Asthenia [None]
